FAERS Safety Report 6557478-7 (Version None)
Quarter: 2010Q1

REPORT INFORMATION
  Report Type: 
  Country: None (occurrence: None)
  Receive Date: 20100127
  Receipt Date: 20100127
  Transmission Date: 20100710
  Serious: Yes (Hospitalization)
  Sender: FDA-Public Use
  Company Number: None

PATIENT
  Age: 67 Year
  Sex: Male
  Weight: 65.2 kg

DRUGS (14)
  1. LITHIUM CARBONATE [Suspect]
     Indication: BIPOLAR DISORDER
     Dosage: 600MG DAILY PO, CHRONIC
     Route: 048
  2. PROPRANOLOL [Concomitant]
  3. DEPAKOTE [Concomitant]
  4. DUONEB [Concomitant]
  5. TIOTROPIUM [Concomitant]
  6. SYNTHROID [Suspect]
  7. OMEPRAZOLE [Concomitant]
  8. LACTULOSE [Concomitant]
  9. ZEMPLAR [Concomitant]
  10. BACTRIM [Concomitant]
  11. LASIX [Concomitant]
  12. LOVAZA [Concomitant]
  13. M.V.I. [Concomitant]
  14. ADDERALL 30 [Suspect]

REACTIONS (10)
  - AZOTAEMIA [None]
  - BLOOD POTASSIUM INCREASED [None]
  - GAIT DISTURBANCE [None]
  - HYPERNATRAEMIA [None]
  - HYPONATRAEMIA [None]
  - MUSCULAR WEAKNESS [None]
  - NEPHROGENIC DIABETES INSIPIDUS [None]
  - PNEUMONIA [None]
  - RENAL FAILURE ACUTE [None]
  - THERAPEUTIC AGENT TOXICITY [None]
